FAERS Safety Report 5945722-6 (Version None)
Quarter: 2008Q4

REPORT INFORMATION
  Report Type: 
  Country: None (occurrence: None)
  Receive Date: 20081107
  Receipt Date: 20081104
  Transmission Date: 20090506
  Serious: Yes (Hospitalization)
  Sender: FDA-Public Use
  Company Number: JP-AMGEN-US175057

PATIENT
  Sex: Female
  Weight: 43 kg

DRUGS (12)
  1. ENBREL [Suspect]
     Indication: RHEUMATOID ARTHRITIS
     Route: 058
     Dates: start: 20051202, end: 20060519
  2. PREDONINE [Suspect]
     Indication: DRUG USE FOR UNKNOWN INDICATION
     Route: 048
     Dates: start: 20040124
  3. ORCL [Concomitant]
     Indication: RHEUMATOID ARTHRITIS
     Route: 048
  4. CLINORIL [Concomitant]
     Indication: RHEUMATOID ARTHRITIS
     Route: 048
  5. DIOVAN [Concomitant]
     Indication: NEPHRITIS
     Route: 048
  6. ZYLORIC [Concomitant]
  7. OMEPRAL [Concomitant]
     Route: 048
  8. NOVORAPID [Concomitant]
     Dosage: 22 UNIT EVERY 1 DAY
     Route: 058
     Dates: start: 20031208
  9. REBAMIPIDE [Concomitant]
  10. ACHILLEA/RUBIA ROOT TINCTURE/SENNA FRUIT/SENNA LEAF/TARAXACUM OFFICINA [Concomitant]
  11. HALCION [Concomitant]
  12. LASIX [Concomitant]
     Indication: NEPHRITIS
     Route: 048

REACTIONS (2)
  - ESCHERICHIA INFECTION [None]
  - PYELONEPHRITIS [None]
